FAERS Safety Report 19488147 (Version 2)
Quarter: 2021Q3

REPORT INFORMATION
  Report Type: Spontaneous
  Country: DE (occurrence: DE)
  Receive Date: 20210702
  Receipt Date: 20210823
  Transmission Date: 20211014
  Serious: Yes (Other)
  Sender: FDA-Public Use
  Company Number: DE-ORGANON-O2107DEU000062

PATIENT
  Age: 30 Year
  Sex: Female

DRUGS (1)
  1. IMPLANON NXT [Suspect]
     Active Substance: ETONOGESTREL
     Dosage: 1 IMPLANT ROD IN THE LEFT UPPER ARM
     Route: 059
     Dates: start: 20201210

REACTIONS (7)
  - Complication of device removal [Unknown]
  - Abortion induced [Unknown]
  - Complication associated with device [Unknown]
  - Unintended pregnancy [Recovered/Resolved]
  - Keloid scar [Unknown]
  - Pregnancy with implant contraceptive [Recovered/Resolved]
  - Device placement issue [Unknown]

NARRATIVE: CASE EVENT DATE: 20201210
